FAERS Safety Report 24555055 (Version 1)
Quarter: 2024Q4

REPORT INFORMATION
  Report Type: Spontaneous
  Country: ES (occurrence: ES)
  Receive Date: 20241028
  Receipt Date: 20241028
  Transmission Date: 20250114
  Serious: Yes (Other)
  Sender: TEVA
  Company Number: None

PATIENT
  Age: 73 Year
  Sex: Female

DRUGS (1)
  1. FENTANYL [Suspect]
     Active Substance: FENTANYL
     Indication: Osteoarthritis
     Dosage: 1/72: 25 MICROGRAMS/H 5 TRANSDERMAL PATCHES
     Route: 062
     Dates: start: 20240730

REACTIONS (4)
  - Hallucination, visual [Recovering/Resolving]
  - Hallucination, tactile [Recovering/Resolving]
  - Parasomnia [Recovering/Resolving]
  - Nausea [Recovering/Resolving]

NARRATIVE: CASE EVENT DATE: 20240801
